FAERS Safety Report 11294570 (Version 1)
Quarter: 2015Q2

REPORT INFORMATION
  Report Type: Spontaneous
  Country: US (occurrence: None)
  Receive Date: 20150623
  Receipt Date: 20150623
  Transmission Date: 20150821
  Serious: Yes (Hospitalization)
  Sender: FDA-Public Use
  Company Number: RB-72486-2015

PATIENT
  Age: 64 Year
  Sex: Female

DRUGS (6)
  1. MUCINEX DM [Suspect]
     Active Substance: DEXTROMETHORPHAN HYDROBROMIDE\GUAIFENESIN
     Indication: PRODUCT USED FOR UNKNOWN INDICATION
     Dosage: TOOK 1 TABLET AT 7AM AND TOOK HER LAST 2 TABLETS IN THE EVENING AT 7:45PM ON 14-JAN-2015. UNKNOWN)
     Dates: start: 20150114
  2. BABY ASPIRIN [Concomitant]
     Active Substance: ASPIRIN
  3. MULTIVITAMIN [Concomitant]
     Active Substance: VITAMINS
  4. PRILOSEC [Concomitant]
     Active Substance: OMEPRAZOLE MAGNESIUM
  5. DEXTROMETHORPHAN [Suspect]
     Active Substance: DEXTROMETHORPHAN
     Indication: PRODUCT USED FOR UNKNOWN INDICATION
     Dosage: (TOOK UNSPECIFIED DOSE ON 14-JAN-2015 AT APPROXIMATELY 4PM. UNKNOWN)
     Dates: start: 20150114
  6. HYDROCHLOROTHIAZIDE. [Concomitant]
     Active Substance: HYDROCHLOROTHIAZIDE

REACTIONS (4)
  - Pyrexia [None]
  - Dysphemia [None]
  - Speech disorder [None]
  - Tremor [None]
